FAERS Safety Report 17800677 (Version 1)
Quarter: 2020Q2

REPORT INFORMATION
  Report Type: Spontaneous
  Country: CZ (occurrence: CZ)
  Receive Date: 20200518
  Receipt Date: 20200518
  Transmission Date: 20200714
  Serious: Yes (Hospitalization, Other)
  Sender: FDA-Public Use
  Company Number: CZ-PFIZER INC-2020192470

PATIENT
  Age: 67 Year
  Sex: Female

DRUGS (10)
  1. PARALEN [PARACETAMOL] [Concomitant]
     Indication: HEADACHE
     Dosage: UNK, AS NEEDED
     Dates: start: 201906
  2. SULFAMETHOXAZOLE/TRIMETHOPRIM [Concomitant]
     Active Substance: SULFAMETHOXAZOLE\TRIMETHOPRIM
     Indication: PROPHYLAXIS
     Dosage: UNK
     Dates: start: 201907
  3. MYCOPHENOLATE MOFETIL. [Suspect]
     Active Substance: MYCOPHENOLATE MOFETIL
     Indication: HEPATITIS
     Dosage: 500 MG, 2X/DAY (EVERY 12 HOURS)
     Dates: start: 201906
  4. TACROLIMUS. [Suspect]
     Active Substance: TACROLIMUS
     Indication: HEPATITIS
  5. URSODEOXYCHOLIC ACID [Concomitant]
     Active Substance: URSODIOL
     Indication: SUPPORTIVE CARE
     Dosage: UNK
     Dates: start: 201906
  6. METHYLPREDNISOLONE. [Suspect]
     Active Substance: METHYLPREDNISOLONE
     Indication: DRUG-INDUCED LIVER INJURY
     Dosage: 2 MG/KG, 1X/DAY
     Route: 042
     Dates: start: 201906
  7. TACROLIMUS. [Suspect]
     Active Substance: TACROLIMUS
     Indication: IMMUNOSUPPRESSION
     Dosage: 8 MG, 1X/DAY
     Dates: start: 201907
  8. NIVOLUMAB [Concomitant]
     Active Substance: NIVOLUMAB
     Indication: MALIGNANT MELANOMA
     Dosage: UNK, CYCLIC (1 DOSE EVERY 2 WEEKS)
     Dates: start: 201903, end: 201907
  9. MYCOPHENOLATE MOFETIL. [Suspect]
     Active Substance: MYCOPHENOLATE MOFETIL
     Indication: IMMUNOSUPPRESSION
  10. VITAMIN K [Concomitant]
     Active Substance: PHYTONADIONE
     Indication: SUPPORTIVE CARE
     Dosage: UNK
     Dates: start: 201907

REACTIONS (4)
  - Product use in unapproved indication [Unknown]
  - Cytomegalovirus viraemia [Unknown]
  - Infection [Unknown]
  - Off label use [Unknown]

NARRATIVE: CASE EVENT DATE: 2019
